FAERS Safety Report 5053770-6 (Version None)
Quarter: 2006Q2

REPORT INFORMATION
  Report Type: 
  Country: None (occurrence: None)
  Receive Date: 20060612
  Receipt Date: 20060630
  Transmission Date: 20061013
  Serious: Yes (Other)
  Sender: FDA-Public Use
  Company Number: 2006082302

PATIENT
  Age: 15 Year
  Sex: Female

DRUGS (4)
  1. NORVASC [Suspect]
     Dosage: 40 MG (5 MG), ORAL
     Route: 048
     Dates: start: 20060630
  2. DIOVAN [Suspect]
     Dosage: 320 MG (40 MG), ORAL
     Route: 048
     Dates: start: 20060630
  3. ETODOLAC [Suspect]
     Dosage: 200 MG (20 MG), ORAL
     Route: 048
     Dates: start: 20060630
  4. ALCOHOL (ETHANOL) [Suspect]
     Dosage: 270 ML, ORAL
     Route: 048
     Dates: start: 20060630

REACTIONS (3)
  - DEPRESSED LEVEL OF CONSCIOUSNESS [None]
  - MULTIPLE DRUG OVERDOSE [None]
  - RESPIRATORY RATE INCREASED [None]
